FAERS Safety Report 9056827 (Version 2)
Quarter: 2013Q1

REPORT INFORMATION
  Report Type: Report from Study
  Country: US (occurrence: US)
  Receive Date: 20130201
  Receipt Date: 20130215
  Transmission Date: 20140127
  Serious: Yes (Other)
  Sender: FDA-Public Use
  Company Number: US-ACTELION-A-NJ2013-77919

PATIENT
  Age: 67 Year
  Sex: Male
  Weight: 77.55 kg

DRUGS (11)
  1. TRACLEER [Suspect]
     Indication: PULMONARY ARTERIAL HYPERTENSION
     Dosage: 62.5 MG, BID
     Route: 048
     Dates: start: 201202, end: 201212
  2. ADCIRCA [Concomitant]
     Dosage: UNK
  3. DIOVAN [Concomitant]
     Dosage: UNK
  4. DIGOXIN [Concomitant]
     Dosage: UNK
  5. LASIX [Concomitant]
     Dosage: UNK
  6. NEXIUM [Concomitant]
     Dosage: UNK
  7. CRESTOR [Concomitant]
     Dosage: UNK
  8. VENTOLIN [Concomitant]
     Dosage: UNK
  9. NASONEX [Concomitant]
     Dosage: UNK
  10. ASMANEX [Concomitant]
     Dosage: UNK
  11. EPLERENONE [Concomitant]
     Dosage: UNK

REACTIONS (3)
  - Intestinal haemorrhage [Recovering/Resolving]
  - Haemoglobin decreased [Recovering/Resolving]
  - Transfusion [Recovering/Resolving]
